FAERS Safety Report 9676135 (Version 1)
Quarter: 2013Q4

REPORT INFORMATION
  Report Type: Spontaneous
  Country: BR (occurrence: BR)
  Receive Date: 20131107
  Receipt Date: 20131107
  Transmission Date: 20140711
  Serious: Yes (Other)
  Sender: FDA-Public Use
  Company Number: BR-BAYER-2013-133674

PATIENT
  Age: 39 Year
  Sex: Female

DRUGS (1)
  1. MIRENA [Suspect]
     Dosage: 20 ?G, CONT
     Route: 015
     Dates: start: 200910, end: 20131004

REACTIONS (4)
  - Vaginal discharge [None]
  - Uterine haemorrhage [None]
  - Device expulsion [Recovered/Resolved]
  - Retained products of conception [None]
